FAERS Safety Report 5693763-9 (Version None)
Quarter: 2008Q2

REPORT INFORMATION
  Report Type: 
  Country: None (occurrence: None)
  Receive Date: 20080403
  Receipt Date: 20080325
  Transmission Date: 20081010
  Serious: Yes (Death)
  Sender: FDA-Public Use
  Company Number: JP-JNJFOC-20080306084

PATIENT
  Age: 20 Year
  Sex: Male

DRUGS (7)
  1. RISPERDAL [Suspect]
     Route: 048
  2. RISPERDAL [Suspect]
     Route: 048
  3. RISPERDAL [Suspect]
     Indication: SCHIZOPHRENIA
     Route: 048
  4. RISPERDAL [Suspect]
     Route: 048
  5. SERENACE [Concomitant]
     Indication: SCHIZOPHRENIA
     Route: 030
  6. AKINETON [Concomitant]
     Indication: SCHIZOPHRENIA
     Route: 030
  7. WYPAX [Concomitant]
     Indication: DRUG USE FOR UNKNOWN INDICATION
     Route: 048

REACTIONS (3)
  - COMPLETED SUICIDE [None]
  - DELUSION [None]
  - HALLUCINATION [None]
